FAERS Safety Report 24020688 (Version 1)
Quarter: 2024Q2

REPORT INFORMATION
  Report Type: Other
  Country: PR (occurrence: PR)
  Receive Date: 20240627
  Receipt Date: 20240627
  Transmission Date: 20240716
  Serious: Yes (Hospitalization)
  Sender: FDA-Public Use
  Company Number: PR-Rhythm Pharmaceuticals, Inc.-2024RHM000120

PATIENT
  Age: 12 Year
  Sex: Female
  Weight: 136.2 kg

DRUGS (3)
  1. IMCIVREE [Suspect]
     Active Substance: SETMELANOTIDE
     Indication: Product used for unknown indication
     Route: 058
     Dates: start: 20240229
  2. IMCIVREE [Suspect]
     Active Substance: SETMELANOTIDE
     Route: 058
     Dates: start: 20240314
  3. IMCIVREE [Suspect]
     Active Substance: SETMELANOTIDE
     Dosage: (0.3 ML)
     Route: 058

REACTIONS (8)
  - Bronchospasm [Unknown]
  - Pyrexia [Recovered/Resolved]
  - Myalgia [Recovered/Resolved]
  - Panic attack [Not Recovered/Not Resolved]
  - Increased appetite [Not Recovered/Not Resolved]
  - Hair texture abnormal [Not Recovered/Not Resolved]
  - Fatigue [Not Recovered/Not Resolved]
  - Skin discolouration [Not Recovered/Not Resolved]

NARRATIVE: CASE EVENT DATE: 20240229
